APPROVED DRUG PRODUCT: DOXYCYCLINE HYCLATE
Active Ingredient: DOXYCYCLINE HYCLATE
Strength: EQ 100MG BASE
Dosage Form/Route: TABLET;ORAL
Application: A062494 | Product #001
Applicant: SUPERPHARM CORP
Approved: Feb 20, 1985 | RLD: No | RS: No | Type: DISCN